FAERS Safety Report 25859427 (Version 3)
Quarter: 2025Q4

REPORT INFORMATION
  Report Type: Spontaneous
  Country: EU (occurrence: EU)
  Receive Date: 20250929
  Receipt Date: 20251009
  Transmission Date: 20260118
  Serious: Yes (Hospitalization, Other)
  Sender: PFIZER
  Company Number: EU-PPH-29930-2

PATIENT
  Age: 85 Year
  Sex: Male

DRUGS (12)
  1. PANTOPRAZOLE [Suspect]
     Active Substance: PANTOPRAZOLE
     Dosage: 40 MG ONCE MORNINGS
     Route: 065
     Dates: start: 202408
  2. TORSEMIDE [Suspect]
     Active Substance: TORSEMIDE
     Indication: Hypertension
     Dosage: 10 MG, ONCE MORNINGS
     Route: 065
     Dates: start: 202408
  3. TORSEMIDE [Suspect]
     Active Substance: TORSEMIDE
     Indication: Pulmonary hypertension
  4. EDOXABAN [Suspect]
     Active Substance: EDOXABAN
     Indication: Anticoagulant therapy
     Dosage: 30 MG HALF A TABLET EVERY EVENING
     Route: 048
     Dates: start: 202408
  5. EDOXABAN [Suspect]
     Active Substance: EDOXABAN
     Dosage: 15 MG, 1X/DAY (QD)
     Dates: start: 202408
  6. LISINOPRIL [Suspect]
     Active Substance: LISINOPRIL
     Indication: Hypertension
     Dosage: 5 MG ONCE EVENINGS
     Route: 065
     Dates: start: 202408
  7. LISINOPRIL [Suspect]
     Active Substance: LISINOPRIL
     Indication: Pulmonary hypertension
  8. METILDIGOXIN [Suspect]
     Active Substance: METILDIGOXIN
     Indication: Pulmonary hypertension
     Dosage: 0.1 MG ONCE MORNINGS
     Route: 065
     Dates: start: 202408
  9. AMLODIPINE [Suspect]
     Active Substance: AMLODIPINE BESYLATE
     Dosage: 10 MG, 1X/DAY (QD)
     Dates: start: 202408
  10. METOPROLOL [Suspect]
     Active Substance: METOPROLOL
     Dosage: 50 MG, 1X/DAY (QD)
     Route: 065
     Dates: start: 202408
  11. LIDOCAINE [Concomitant]
     Active Substance: LIDOCAINE
     Indication: Local anaesthesia
     Dosage: 2 %
  12. NADROPARIN CALCIUM [Concomitant]
     Active Substance: NADROPARIN CALCIUM
     Indication: Anticoagulant therapy
     Dosage: 0.4 MILLILITER
     Route: 058

REACTIONS (2)
  - Basal cell carcinoma [Recovered/Resolved]
  - Malignant melanoma [Recovered/Resolved]
